FAERS Safety Report 14305249 (Version 1)
Quarter: 2017Q4

REPORT INFORMATION
  Report Type: Spontaneous
  Country: JP (occurrence: JP)
  Receive Date: 20171219
  Receipt Date: 20171219
  Transmission Date: 20180321
  Serious: Yes (Other)
  Sender: FDA-Public Use
  Company Number: JP-OTSUKA-BJ20121325

PATIENT
  Age: 29 Year
  Sex: Female
  Weight: 52 kg

DRUGS (4)
  1. AMOXAN [Concomitant]
     Active Substance: AMOXAPINE
     Dosage: 50 MG, BID
     Route: 048
     Dates: start: 20110111, end: 20120201
  2. JZOLOFT [Concomitant]
     Active Substance: SERTRALINE HYDROCHLORIDE
     Indication: DEPRESSION
     Dosage: 50 MG, BID
     Route: 048
     Dates: start: 20101217, end: 20120201
  3. ABILIFY [Suspect]
     Active Substance: ARIPIPRAZOLE
     Indication: BIPOLAR DISORDER
     Dosage: 6 MG, BID
     Route: 048
     Dates: start: 20110714, end: 20120201
  4. AMOXAN [Concomitant]
     Active Substance: AMOXAPINE
     Indication: LISTLESS
     Dosage: 25 MG, BID
     Route: 048
     Dates: start: 20101204, end: 20110110

REACTIONS (3)
  - Caesarean section [Unknown]
  - Premature delivery [Unknown]
  - Maternal exposure during pregnancy [Recovered/Resolved]

NARRATIVE: CASE EVENT DATE: 20120202
